FAERS Safety Report 7586301-7 (Version None)
Quarter: 2011Q3

REPORT INFORMATION
  Report Type: 
  Country: None (occurrence: None)
  Receive Date: 20110701
  Receipt Date: 20110630
  Transmission Date: 20111222
  Serious: Yes (Hospitalization)
  Sender: FDA-Public Use
  Company Number: US-ROXANE LABORATORIES, INC.-2011-RO-00914RO

PATIENT
  Age: 57 Year
  Sex: Male
  Weight: 104 kg

DRUGS (8)
  1. LACTULOSE [Suspect]
     Dosage: 20 G
     Route: 048
  2. MIRALAX [Suspect]
     Indication: CONSTIPATION
     Route: 048
     Dates: start: 20110108, end: 20110116
  3. MULTI-VITAMIN [Concomitant]
  4. NIACIN [Suspect]
     Dosage: 1000 MG
     Route: 048
  5. ASPIRIN [Concomitant]
  6. FISH OIL [Concomitant]
  7. SIMVASTATIN [Concomitant]
  8. PROBENECID [Concomitant]

REACTIONS (6)
  - HYPERSENSITIVITY [None]
  - DIZZINESS [None]
  - CARDIAC DISORDER [None]
  - DYSPNOEA [None]
  - HYPOTENSION [None]
  - ANXIETY [None]
